FAERS Safety Report 23742874 (Version 2)
Quarter: 2024Q2

REPORT INFORMATION
  Report Type: Spontaneous
  Country: CN (occurrence: CN)
  Receive Date: 20240415
  Receipt Date: 20240502
  Transmission Date: 20240715
  Serious: Yes (Hospitalization, Other)
  Sender: FDA-Public Use
  Company Number: CN-PFIZER INC-PV202400047087

PATIENT
  Age: 73 Year
  Sex: Male

DRUGS (13)
  1. PIPERACILLIN SODIUM\TAZOBACTAM SODIUM [Suspect]
     Active Substance: PIPERACILLIN SODIUM\TAZOBACTAM SODIUM
     Indication: Pneumonia
     Dosage: UNK
  2. VORICONAZOLE [Concomitant]
     Active Substance: VORICONAZOLE
     Indication: Pneumonia
     Dosage: 0.2 G, QD
     Route: 041
  3. VORICONAZOLE [Concomitant]
     Active Substance: VORICONAZOLE
     Indication: Antifungal treatment
     Dosage: 0.2 G, Q12H
     Route: 048
  4. VORICONAZOLE [Concomitant]
     Active Substance: VORICONAZOLE
     Indication: Bronchopulmonary aspergillosis
     Dosage: 250 MG, EVERY 12 H
     Route: 048
  5. IMIPENEM AND CILASTATIN [Concomitant]
     Active Substance: CILASTATIN SODIUM\IMIPENEM
     Indication: Pneumonia
     Dosage: 1.0 G, Q12H
     Route: 041
  6. VANCOMYCIN [Concomitant]
     Active Substance: VANCOMYCIN
     Indication: Pneumonia
     Dosage: 0.5 G, QD
     Route: 041
  7. PENICILLIN G [Concomitant]
     Active Substance: PENICILLIN G
     Indication: Bronchopulmonary aspergillosis
     Dosage: 400000 IU, Q4H
     Route: 041
  8. ASPIRIN [Concomitant]
     Active Substance: ASPIRIN
     Indication: Cardiac disorder
     Dosage: UNK
  9. ATORVASTATIN CALCIUM [Concomitant]
     Active Substance: ATORVASTATIN CALCIUM
     Indication: Cardiac disorder
     Dosage: UNK
  10. METHYLPREDNISOLONE [Concomitant]
     Active Substance: METHYLPREDNISOLONE
     Indication: Antiinflammatory therapy
     Dosage: 40 MG, Q12H
     Route: 042
  11. LYOPHILIZED RECOMBINANT HUMAN BRAIN NATRIURETIC PEPTIDE [Concomitant]
     Indication: Cardiac failure
     Dosage: 0.0075 UG/KG. MIN
     Route: 041
  12. NADROPARIN CALCIUM [Concomitant]
     Active Substance: NADROPARIN CALCIUM
     Indication: Anticoagulant therapy
     Dosage: 4100 IU, Q12H (I.H.,)
  13. NOREPINEPHRINE [Concomitant]
     Active Substance: NOREPINEPHRINE\NOREPINEPHRINE BITARTRATE
     Indication: Blood pressure measurement
     Dosage: 0.27 UG/KG.MIN

REACTIONS (1)
  - Jarisch-Herxheimer reaction [Recovering/Resolving]
